FAERS Safety Report 6366159-4 (Version None)
Quarter: 2009Q3

REPORT INFORMATION
  Report Type: 
  Country: None (occurrence: None)
  Receive Date: 20090921
  Receipt Date: 20090911
  Transmission Date: 20100115
  Serious: Yes (Other)
  Sender: FDA-Public Use
  Company Number: US-BIOGENIDEC-2009BI027199

PATIENT
  Age: 51 Year
  Sex: Male

DRUGS (3)
  1. AVONEX [Suspect]
     Indication: MULTIPLE SCLEROSIS
     Route: 030
     Dates: end: 20070801
  2. AVONEX [Suspect]
     Route: 030
     Dates: start: 20070801, end: 20070801
  3. AVONEX [Suspect]
     Route: 030
     Dates: start: 20070801, end: 20090301

REACTIONS (3)
  - INFLUENZA LIKE ILLNESS [None]
  - PANCREATIC CARCINOMA METASTATIC [None]
  - VISUAL IMPAIRMENT [None]
